FAERS Safety Report 8056133-4 (Version None)
Quarter: 2012Q1

REPORT INFORMATION
  Report Type: 
  Country: None (occurrence: None)
  Receive Date: 20120119
  Receipt Date: 20120116
  Transmission Date: 20120608
  Serious: No
  Sender: FDA-Public Use
  Company Number: US-PFIZER INC-2012011850

PATIENT
  Age: 80 Year
  Sex: Male

DRUGS (1)
  1. ADVIL COLD AND SINUS [Suspect]
     Dosage: UNK
     Route: 065
     Dates: start: 20120115

REACTIONS (1)
  - INSOMNIA [None]
